FAERS Safety Report 9778153 (Version 1)
Quarter: 2013Q4

REPORT INFORMATION
  Report Type: Spontaneous
  Country: US (occurrence: US)
  Receive Date: 20131223
  Receipt Date: 20131223
  Transmission Date: 20140711
  Serious: No
  Sender: FDA-Public Use
  Company Number: US-JNJFOC-20131212380

PATIENT
  Age: 48 Year
  Sex: Female

DRUGS (2)
  1. INVEGA SUSTENNA [Suspect]
     Indication: BIPOLAR I DISORDER
     Route: 030
     Dates: start: 2013
  2. SELECTIVE SEROTONIN REUPTAKE INHIBITOR [Concomitant]
     Route: 065

REACTIONS (1)
  - Blood cholesterol increased [Not Recovered/Not Resolved]
